FAERS Safety Report 7623402-9 (Version None)
Quarter: 2011Q3

REPORT INFORMATION
  Report Type: 
  Country: None (occurrence: None)
  Receive Date: 20110720
  Receipt Date: 20110715
  Transmission Date: 20111222
  Serious: Yes (Other)
  Sender: FDA-Public Use
  Company Number: DK-JNJFOC-20110705592

PATIENT
  Age: 78 Year
  Sex: Male

DRUGS (1)
  1. TAPENTADOL [Suspect]
     Indication: PRODUCT USED FOR UNKNOWN INDICATION
     Route: 048

REACTIONS (2)
  - HALLUCINATION [None]
  - CONFUSIONAL STATE [None]
